FAERS Safety Report 15375513 (Version 1)
Quarter: 2018Q3

REPORT INFORMATION
  Report Type: Spontaneous
  Country: US (occurrence: US)
  Receive Date: 20180912
  Receipt Date: 20180912
  Transmission Date: 20181010
  Serious: Yes (Disabling, Other)
  Sender: FDA-Public Use
  Company Number: US-NOVOPROD-620172

PATIENT
  Age: 73 Year
  Sex: Female
  Weight: 65.76 kg

DRUGS (5)
  1. LOSARTAN POTASSIUM. [Concomitant]
     Active Substance: LOSARTAN POTASSIUM
     Indication: BLOOD PRESSURE ABNORMAL
     Dosage: UNK
  2. OXYCODONE [Concomitant]
     Active Substance: OXYCODONE
     Indication: PAIN
     Dosage: UNK
  3. LEVEMIR [Suspect]
     Active Substance: INSULIN DETEMIR
     Indication: TYPE 2 DIABETES MELLITUS
     Dosage: 30 U, BID IN THE MORNING AND EVENING
     Route: 058
     Dates: start: 201801, end: 20180902
  4. NOVOLOG [Suspect]
     Active Substance: INSULIN ASPART
     Indication: TYPE 2 DIABETES MELLITUS
     Dosage: 10 TO 20 U PER DAY
     Route: 058
     Dates: start: 2008
  5. ATENOLOL. [Concomitant]
     Active Substance: ATENOLOL
     Indication: BLOOD PRESSURE ABNORMAL
     Dosage: UNK

REACTIONS (10)
  - Weight increased [Not Recovered/Not Resolved]
  - Fall [Recovered/Resolved]
  - Joint dislocation [Not Recovered/Not Resolved]
  - Nail discolouration [Not Recovered/Not Resolved]
  - Peripheral swelling [Not Recovered/Not Resolved]
  - Electrocardiogram abnormal [Unknown]
  - Arthralgia [Not Recovered/Not Resolved]
  - Joint dislocation [Recovered/Resolved]
  - Renal pain [Not Recovered/Not Resolved]
  - Loss of consciousness [Recovered/Resolved]

NARRATIVE: CASE EVENT DATE: 2018
